FAERS Safety Report 8377533-9 (Version None)
Quarter: 2012Q2

REPORT INFORMATION
  Report Type: 
  Country: None (occurrence: None)
  Receive Date: 20120522
  Receipt Date: 20120514
  Transmission Date: 20120825
  Serious: Yes (Other)
  Sender: FDA-Public Use
  Company Number: AT-B.I. PHARMACEUTICALS,INC./RIDGEFIELD-2012-AP-00395AP

PATIENT
  Age: 58 Year
  Sex: Male
  Weight: 103 kg

DRUGS (4)
  1. VENAXIBENE [Concomitant]
     Indication: DEPRESSION
     Route: 048
     Dates: start: 20090501
  2. PRAMIPEXOLE DIHYDROCHLORIDE [Suspect]
     Indication: PARKINSONISM
     Dosage: 3.15 MG
     Route: 048
     Dates: start: 20090501, end: 20120301
  3. PRAMIPEXOLE DIHYDROCHLORIDE [Suspect]
     Dosage: 1.57 MG
     Route: 048
     Dates: start: 20120330
  4. AZILECT [Concomitant]
     Indication: PARKINSONISM
     Route: 048
     Dates: start: 20090501

REACTIONS (3)
  - IMPULSE-CONTROL DISORDER [None]
  - COMPULSIVE SHOPPING [None]
  - PATHOLOGICAL GAMBLING [None]
